FAERS Safety Report 21099576 (Version 2)
Quarter: 2022Q3

REPORT INFORMATION
  Report Type: Spontaneous
  Country: SG (occurrence: SG)
  Receive Date: 20220719
  Receipt Date: 20220906
  Transmission Date: 20221026
  Serious: Yes (Other)
  Sender: FDA-Public Use
  Company Number: SG-ELI_LILLY_AND_COMPANY-SG202207004168

PATIENT
  Age: 78 Year

DRUGS (3)
  1. ABEMACICLIB [Suspect]
     Active Substance: ABEMACICLIB
     Indication: Breast cancer
     Dosage: 100 MG, UNKNOWN
     Route: 065
     Dates: start: 20210902
  2. ABEMACICLIB [Suspect]
     Active Substance: ABEMACICLIB
     Dosage: 50 MG, DAILY
     Route: 065
     Dates: start: 202201
  3. LETROZOLE [Concomitant]
     Active Substance: LETROZOLE
     Indication: Breast cancer
     Dosage: UNK UNK, UNKNOWN
     Route: 065
     Dates: start: 202109

REACTIONS (3)
  - Malignant neoplasm progression [Unknown]
  - Hepatic failure [Unknown]
  - Neutropenia [Unknown]
